FAERS Safety Report 9094044 (Version 2)
Quarter: 2013Q1

REPORT INFORMATION
  Report Type: Report from Study
  Country: GB (occurrence: GB)
  Receive Date: 20130218
  Receipt Date: 20130227
  Transmission Date: 20140127
  Serious: Yes (Death, Other)
  Sender: FDA-Public Use
  Company Number: GB-ROCHE-1066451

PATIENT
  Age: 53 Year
  Sex: Male
  Weight: 96 kg

DRUGS (21)
  1. PEG-INTERFERON ALFA 2A [Suspect]
     Indication: HEPATITIS C
     Route: 058
     Dates: start: 20110906, end: 20111206
  2. CITALOPRAM [Interacting]
     Indication: DEPRESSION
     Route: 065
     Dates: start: 20111128, end: 20111208
  3. RIBAVIRIN [Concomitant]
     Route: 065
     Dates: start: 20110906, end: 20111212
  4. CALCICHEW [Concomitant]
     Route: 065
     Dates: start: 201109
  5. METOCLOPRAMIDE [Concomitant]
     Route: 065
     Dates: start: 20110913
  6. PARACETAMOL [Concomitant]
     Route: 065
     Dates: start: 20110913
  7. ZOPICLONE [Concomitant]
  8. LISINOPRIL [Concomitant]
     Route: 065
     Dates: start: 201011
  9. IBUPROFEN [Concomitant]
     Route: 065
     Dates: start: 20110925
  10. ASPIRIN [Concomitant]
  11. THYROXINE [Concomitant]
  12. ASCORBIC ACID [Concomitant]
  13. ERGOCALCIFEROL [Concomitant]
  14. FOLIC ACID [Concomitant]
  15. NICOTINAMIDE [Concomitant]
  16. PANTHENOL [Concomitant]
  17. RETINOL [Concomitant]
  18. RIBOFLAVIN [Concomitant]
  19. THIAMINE [Concomitant]
  20. ZOPICLONE [Concomitant]
     Route: 065
  21. ALISPORIVIR [Suspect]
     Indication: HEPATITIS C
     Route: 048
     Dates: start: 20110906, end: 20111212

REACTIONS (4)
  - Completed suicide [Fatal]
  - Depression [Recovered/Resolved]
  - Anxiety [Recovered/Resolved]
  - Drug interaction [Unknown]
